FAERS Safety Report 6897066-6 (Version None)
Quarter: 2010Q3

REPORT INFORMATION
  Report Type: 
  Country: None (occurrence: None)
  Receive Date: 20100802
  Receipt Date: 20070402
  Transmission Date: 20110219
  Serious: No
  Sender: FDA-Public Use
  Company Number: US-PFIZER INC-2007026820

PATIENT
  Sex: Male
  Weight: 83.9 kg

DRUGS (4)
  1. LYRICA [Suspect]
     Indication: TARSAL TUNNEL SYNDROME
     Dates: start: 20070109, end: 20070222
  2. MONTELUKAST SODIUM [Concomitant]
  3. FLONASE [Concomitant]
  4. ALL OTHER THERAPEUTIC PRODUCTS [Concomitant]

REACTIONS (3)
  - ACCOMMODATION DISORDER [None]
  - BLOOD POTASSIUM DECREASED [None]
  - VISION BLURRED [None]
